FAERS Safety Report 9713641 (Version 1)
Quarter: 2013Q4

REPORT INFORMATION
  Report Type: Spontaneous
  Country: US (occurrence: None)
  Receive Date: 20131125
  Receipt Date: 20131125
  Transmission Date: 20140711
  Serious: Yes (Hospitalization)
  Sender: FDA-Public Use
  Company Number: None

PATIENT
  Sex: Male

DRUGS (1)
  1. AMOXICILLION/CLAVULANATE [Suspect]
     Indication: SINUSITIS
     Route: 048
     Dates: start: 20130807, end: 20130817

REACTIONS (1)
  - Serum sickness [None]
